FAERS Safety Report 8922943 (Version 1)
Quarter: 2012Q4

REPORT INFORMATION
  Report Type: 
  Country: CH (occurrence: CH)
  Receive Date: 20121123
  Receipt Date: 20121123
  Transmission Date: 20130627
  Serious: Yes (Other)
  Sender: FDA-Public Use
  Company Number: PHHY2012CH104775

PATIENT
  Age: 83 Year
  Sex: Male

DRUGS (9)
  1. SINTROM [Suspect]
     Route: 048
  2. IBUPROFEN [Suspect]
     Indication: GOUT
  3. PREDNISONE [Suspect]
     Indication: GOUT
  4. ASPIRIN CARDIO [Suspect]
     Dosage: 100 mg QD
     Route: 048
  5. CALCIUM D3 [Concomitant]
     Dosage: 1 DF, BID
  6. LISITRIL [Concomitant]
     Dosage: 10 mg QD
  7. METO ZEROK [Concomitant]
     Dosage: 50 mg QD
  8. TORASEMIDE SANDOZ [Concomitant]
     Dosage: 10 mg QD
  9. DAFALGAN [Concomitant]
     Dosage: 1 DF, TID

REACTIONS (6)
  - Cerebral haematoma [Recovering/Resolving]
  - Aspiration bronchial [Recovering/Resolving]
  - Urinary incontinence [Recovering/Resolving]
  - Pain in extremity [Recovering/Resolving]
  - Vomiting [Recovering/Resolving]
  - International normalised ratio increased [Recovering/Resolving]
